FAERS Safety Report 24903956 (Version 1)
Quarter: 2025Q1

REPORT INFORMATION
  Report Type: Report from Study
  Country: EG (occurrence: EG)
  Receive Date: 20250130
  Receipt Date: 20250130
  Transmission Date: 20250409
  Serious: Yes (Disabling)
  Sender: ROCHE
  Company Number: EG-ROCHE-3396232

PATIENT
  Age: 23 Year
  Sex: Female
  Weight: 66 kg

DRUGS (1)
  1. OCREVUS [Suspect]
     Active Substance: OCRELIZUMAB
     Indication: Multiple sclerosis
     Route: 040
     Dates: start: 20200909

REACTIONS (5)
  - Withdrawal syndrome [Not Recovered/Not Resolved]
  - Infusion related reaction [Recovered/Resolved]
  - Weight decreased [Not Recovered/Not Resolved]
  - Hypothyroidism [Recovering/Resolving]
  - Gastrointestinal disorder [Recovering/Resolving]

NARRATIVE: CASE EVENT DATE: 20200909
